FAERS Safety Report 5217134-4 (Version None)
Quarter: 2007Q1

REPORT INFORMATION
  Report Type: 
  Country: None (occurrence: None)
  Receive Date: 20070124
  Receipt Date: 20070123
  Transmission Date: 20070707
  Serious: Yes (Hospitalization)
  Sender: FDA-Public Use
  Company Number: FR-GLAXOSMITHKLINE-B0454897A

PATIENT
  Age: 27 Month
  Sex: Male
  Weight: 15.5 kg

DRUGS (2)
  1. AUGMENTIN '125' [Suspect]
     Dosage: 1UNIT THREE TIMES PER DAY
     Route: 048
     Dates: start: 20061230, end: 20070104
  2. ASPEGIC 1000 [Concomitant]
     Dosage: 100MG TWICE PER DAY
     Route: 048
     Dates: start: 20061230, end: 20061230

REACTIONS (5)
  - ARTHRALGIA [None]
  - FEELING HOT [None]
  - GAIT DISTURBANCE [None]
  - OEDEMA [None]
  - URTICARIA GENERALISED [None]
